FAERS Safety Report 16962525 (Version 1)
Quarter: 2019Q4

REPORT INFORMATION
  Report Type: Spontaneous
  Country: DE (occurrence: DE)
  Receive Date: 20191025
  Receipt Date: 20191025
  Transmission Date: 20200122
  Serious: Yes (Other)
  Sender: FDA-Public Use
  Company Number: DE-UCBSA-2019044123

PATIENT
  Sex: Male

DRUGS (1)
  1. NEUPRO [Suspect]
     Active Substance: ROTIGOTINE
     Indication: RESTLESS LEGS SYNDROME
     Dosage: 1MG; 2 UNITS (REMOVED 1 PATCH AND LEFT THE 2ND PATCH ON THE SKIN FOR 2 DAYS)
     Route: 062

REACTIONS (4)
  - Off label use [Unknown]
  - Fall [Unknown]
  - Vertigo [Unknown]
  - Cardiovascular disorder [Unknown]
